FAERS Safety Report 9350524 (Version 1)
Quarter: 2013Q2

REPORT INFORMATION
  Report Type: Spontaneous
  Country: CN (occurrence: CN)
  Receive Date: 20130617
  Receipt Date: 20130617
  Transmission Date: 20140414
  Serious: Yes (Hospitalization)
  Sender: FDA-Public Use
  Company Number: CN-JNJFOC-20130602715

PATIENT
  Age: 55 Year
  Sex: Female
  Weight: 74 kg

DRUGS (1)
  1. TYLENOL COLD [Suspect]
     Indication: NASOPHARYNGITIS
     Route: 048
     Dates: start: 20120124, end: 20120128

REACTIONS (7)
  - Hepatic function abnormal [Recovering/Resolving]
  - Decreased appetite [None]
  - Fatigue [None]
  - Food aversion [None]
  - Chromaturia [None]
  - Alanine aminotransferase increased [None]
  - Aspartate aminotransferase increased [None]
